FAERS Safety Report 25651049 (Version 2)
Quarter: 2025Q4

REPORT INFORMATION
  Report Type: Spontaneous
  Country: JP (occurrence: JP)
  Receive Date: 20250806
  Receipt Date: 20251103
  Transmission Date: 20260118
  Serious: Yes (Death, Life-Threatening, Other)
  Sender: BRISTOL-MYERS SQUIBB COMPANY
  Company Number: JP-BRISTOL-MYERS SQUIBB COMPANY-2025-108328

PATIENT
  Age: 76 Year
  Sex: Male

DRUGS (4)
  1. NIVOLUMAB [Suspect]
     Active Substance: NIVOLUMAB
     Indication: Malignant melanoma
     Dosage: DAY 1
  2. NIVOLUMAB [Suspect]
     Active Substance: NIVOLUMAB
     Dosage: DAY 22
  3. IPILIMUMAB [Suspect]
     Active Substance: IPILIMUMAB
     Indication: Malignant melanoma
     Dosage: DAY 1
  4. IPILIMUMAB [Suspect]
     Active Substance: IPILIMUMAB
     Dosage: DAY 22

REACTIONS (2)
  - Megacolon [Fatal]
  - Immune-mediated enterocolitis [Not Recovered/Not Resolved]
